FAERS Safety Report 6925386 (Version 3)
Quarter: 2013Q2

REPORT INFORMATION
  Report Type: Spontaneous
  Country: US (occurrence: US)
  Receive Date: 20090303
  Receipt Date: 20130516
  Transmission Date: 20140414
  Serious: Yes (Other)
  Sender: FDA-Public Use
  Company Number: US-PFIZER INC-2009175758

PATIENT
  Age: 28 Year
  Sex: Female
  Weight: 90.7 kg

DRUGS (12)
  1. ZOLOFT [Suspect]
     Indication: ANXIETY
     Dosage: 25 MG, 1X/DAY
     Dates: start: 199909, end: 1999
  2. ZOLOFT [Suspect]
     Indication: HALLUCINATION
     Dosage: 50 MG, 1X/DAY
     Dates: start: 1999, end: 2005
  3. ZOLOFT [Suspect]
     Indication: PANIC ATTACK
  4. SERTRALINE HCL [Suspect]
     Indication: HALLUCINATION
     Dosage: 50 MG, 1X/DAY
     Dates: start: 2005
  5. SERTRALINE HCL [Suspect]
     Indication: PANIC ATTACK
  6. SERTRALINE HCL [Suspect]
     Indication: ANXIETY
  7. NASACORT AQ [Concomitant]
     Dosage: UNK
  8. BENADRYL SKIN ALLERGY RELIEF [Concomitant]
     Indication: SINUS DISORDER
     Dosage: UNK, AS NEEDED
  9. BENADRYL SKIN ALLERGY RELIEF [Concomitant]
     Indication: HYPERSENSITIVITY
  10. PROVERA [Concomitant]
     Dosage: UNK
  11. PRENATAL VITAMINS [Concomitant]
     Dosage: UNK, DAILY
  12. BIOTIN [Concomitant]
     Dosage: UNK, 1X/DAY

REACTIONS (7)
  - Sensory disturbance [Not Recovered/Not Resolved]
  - Menstruation irregular [Unknown]
  - Tremor [Unknown]
  - Ear infection [Recovered/Resolved]
  - Postpartum depression [Unknown]
  - Vertigo [Unknown]
  - Ear pain [Unknown]
